FAERS Safety Report 7910104-4 (Version None)
Quarter: 2011Q4

REPORT INFORMATION
  Report Type: 
  Country: None (occurrence: None)
  Receive Date: 20111111
  Receipt Date: 20111102
  Transmission Date: 20120403
  Serious: Yes (Life-Threatening, Hospitalization)
  Sender: FDA-Public Use
  Company Number: US-GENZYME-FABR-1002227

PATIENT
  Sex: Male

DRUGS (1)
  1. FABRAZYME [Suspect]
     Indication: FABRY'S DISEASE
     Dosage: 70 MG, Q2W
     Route: 042
     Dates: start: 20051207

REACTIONS (4)
  - SEPSIS [None]
  - ABDOMINAL PAIN [None]
  - MULTI-ORGAN FAILURE [None]
  - CHOLECYSTITIS INFECTIVE [None]
